FAERS Safety Report 6180804-8 (Version None)
Quarter: 2009Q2

REPORT INFORMATION
  Report Type: 
  Country: None (occurrence: None)
  Receive Date: 20090506
  Receipt Date: 20090428
  Transmission Date: 20091009
  Serious: Yes (Hospitalization, Other)
  Sender: FDA-Public Use
  Company Number: US-PFIZER INC-2009185598

PATIENT
  Sex: Female
  Weight: 69.853 kg

DRUGS (18)
  1. ACCUPRIL [Suspect]
     Indication: HYPERTENSION
  2. AMLODIPINE BESYLATE [Suspect]
     Indication: HYPERTENSION
     Dosage: 5 MG, 1X/DAY
     Dates: start: 20090201
  3. HYDROCHLOROTHIAZIDE [Suspect]
  4. AMLODIPINE [Suspect]
  5. SYNTHROID [Concomitant]
     Dosage: UNK
  6. WELCHOL [Concomitant]
  7. GEMFIBROZIL [Concomitant]
  8. MULTI-VITAMINS [Concomitant]
  9. CALCIUM WITH VITAMIN D [Concomitant]
  10. MAGNESIUM [Concomitant]
  11. ACETYLSALICYLIC ACID [Concomitant]
  12. ZOLOFT [Concomitant]
  13. AMBIEN [Concomitant]
  14. DUONEB [Concomitant]
  15. PULMICORT-100 [Concomitant]
  16. QVAR 40 [Concomitant]
  17. PROAIR HFA [Concomitant]
  18. RHINOCORT [Concomitant]

REACTIONS (5)
  - BRONCHITIS [None]
  - HYPOKALAEMIA [None]
  - HYPONATRAEMIA [None]
  - LARYNGITIS [None]
  - SINUS DISORDER [None]
